FAERS Safety Report 17705185 (Version 1)
Quarter: 2020Q2

REPORT INFORMATION
  Report Type: Spontaneous
  Country: US (occurrence: US)
  Receive Date: 20200424
  Receipt Date: 20200424
  Transmission Date: 20200714
  Serious: No
  Sender: FDA-Public Use
  Company Number: US-PFIZER INC-2020162691

PATIENT
  Age: 45 Year
  Sex: Female
  Weight: 66.22 kg

DRUGS (2)
  1. SULFASALAZINE. [Suspect]
     Active Substance: SULFASALAZINE
     Dosage: 500 MG, 3X/DAY(TWO TABLETS IN THE MORNING AND ONE TABLET AT NIGHT)
  2. SULFASALAZINE. [Suspect]
     Active Substance: SULFASALAZINE
     Indication: RHEUMATOID ARTHRITIS
     Dosage: 1500 MG, 2X/DAY (TAKING THREE, 500MG TABLETS, TWICE DAILY)

REACTIONS (2)
  - Hypokinesia [Unknown]
  - Intentional product use issue [Unknown]
